FAERS Safety Report 9380394 (Version 1)
Quarter: 2013Q3

REPORT INFORMATION
  Report Type: Report from Study
  Country: AR (occurrence: AR)
  Receive Date: 20130702
  Receipt Date: 20130702
  Transmission Date: 20140515
  Serious: Yes (Death)
  Sender: FDA-Public Use
  Company Number: PHHY2013AR007715

PATIENT
  Age: 89 Year
  Sex: Female

DRUGS (1)
  1. EXELON [Suspect]
     Indication: SENILE DEMENTIA
     Dosage: 3 MG, BID
     Route: 048

REACTIONS (2)
  - Cardiac arrest [Fatal]
  - Dehydration [Recovered/Resolved]
